FAERS Safety Report 6592443-5 (Version None)
Quarter: 2010Q1

REPORT INFORMATION
  Report Type: 
  Country: None (occurrence: None)
  Receive Date: 20100221
  Receipt Date: 20091103
  Transmission Date: 20100710
  Serious: No
  Sender: FDA-Public Use
  Company Number: US-ALLERGAN-0914108US

PATIENT
  Sex: Female

DRUGS (2)
  1. BOTOX [Suspect]
     Indication: MIGRAINE
     Dosage: UNK
     Route: 030
     Dates: start: 20090809, end: 20090809
  2. UNKNOWN [Concomitant]

REACTIONS (13)
  - DEPRESSION [None]
  - DYSGEUSIA [None]
  - EYELID OEDEMA [None]
  - FACIAL PARESIS [None]
  - HEADACHE [None]
  - INFLUENZA [None]
  - INJECTION SITE PAIN [None]
  - MUSCULOSKELETAL PAIN [None]
  - MUSCULOSKELETAL STIFFNESS [None]
  - NAUSEA [None]
  - NECK PAIN [None]
  - PAIN [None]
  - VOMITING [None]
